FAERS Safety Report 25976885 (Version 1)
Quarter: 2025Q4

REPORT INFORMATION
  Report Type: Spontaneous
  Country: KZ (occurrence: KZ)
  Receive Date: 20251030
  Receipt Date: 20251030
  Transmission Date: 20260117
  Serious: Yes (Other)
  Sender: HETERO
  Company Number: KZ-HETERO-HET2025KZ06441

PATIENT
  Sex: Male

DRUGS (1)
  1. DOLUTEGRAVIR\LAMIVUDINE\TENOFOVIR DISOPROXIL FUMARATE [Suspect]
     Active Substance: DOLUTEGRAVIR\LAMIVUDINE\TENOFOVIR DISOPROXIL FUMARATE
     Indication: HIV infection WHO clinical stage III
     Dosage: UNK
     Route: 065

REACTIONS (4)
  - Nephrolithiasis [Recovering/Resolving]
  - Chronic kidney disease [Recovering/Resolving]
  - Tubulointerstitial nephritis [Recovering/Resolving]
  - Infection [Recovering/Resolving]
